FAERS Safety Report 4873105-9 (Version None)
Quarter: 2005Q4

REPORT INFORMATION
  Report Type: 
  Country: None (occurrence: None)
  Receive Date: 20051201
  Receipt Date: 20050717
  Transmission Date: 20060501
  Serious: No
  Sender: FDA-Public Use
  Company Number: 2005PV000404

PATIENT
  Sex: Female
  Weight: 102.5129 kg

DRUGS (13)
  1. BYETTA [Suspect]
     Indication: DIABETES MELLITUS NON-INSULIN-DEPENDENT
     Dosage: SEE IMAGE
     Route: 058
     Dates: start: 20050628, end: 20050101
  2. BYETTA [Suspect]
     Indication: DIABETES MELLITUS NON-INSULIN-DEPENDENT
     Dosage: SEE IMAGE
     Route: 058
     Dates: start: 20050101
  3. GLUCOPHAGE ^BRISTORL-MYERS SQUIBB^ [Concomitant]
  4. AMARYL [Concomitant]
  5. DOIVAN ^NOVARTIS^ [Concomitant]
  6. SINGULAIR [Concomitant]
  7. LIPITOR [Concomitant]
  8. ZYRTEC [Concomitant]
  9. CYMBALTA [Concomitant]
  10. HUMALOG [Concomitant]
  11. HUMULIN N [Concomitant]
  12. DEPO-ESTRADIOL [Concomitant]
  13. SYNTHROID [Concomitant]

REACTIONS (2)
  - RASH [None]
  - RASH PRURITIC [None]
